FAERS Safety Report 14873473 (Version 1)
Quarter: 2018Q2

REPORT INFORMATION
  Report Type: Spontaneous
  Country: US (occurrence: US)
  Receive Date: 20180424
  Receipt Date: 20180424
  Transmission Date: 20180711
  Serious: No
  Sender: FDA-Public Use
  Company Number: None

PATIENT
  Age: 72 Year
  Sex: Female
  Weight: 83.25 kg

DRUGS (11)
  1. OSCAL [Concomitant]
     Active Substance: CALCIUM CARBONATE
  2. ASPIRIN. [Concomitant]
     Active Substance: ASPIRIN
  3. ALBUTEROL NEBULIZER SOLUTION [Concomitant]
     Active Substance: ALBUTEROL
  4. JANUVIA [Concomitant]
     Active Substance: SITAGLIPTIN PHOSPHATE
  5. HUMALOG MIX75/25 [Concomitant]
     Active Substance: INSULIN LISPRO
  6. FERROUS SULFATE 325 [Concomitant]
  7. LASIX  40MG [Concomitant]
  8. LIPITOR 10MG. [Concomitant]
  9. NEURONTIN 600 [Concomitant]
  10. RAYALDEE [Suspect]
     Active Substance: CALCIFEDIOL
     Indication: HYPERPARATHYROIDISM SECONDARY
     Route: 048
     Dates: start: 20180412, end: 20180424
  11. CHLORTHALIDONE 50MG [Concomitant]
     Active Substance: CHLORTHALIDONE

REACTIONS (1)
  - Somnolence [None]

NARRATIVE: CASE EVENT DATE: 20180424
